FAERS Safety Report 9576611 (Version 1)
Quarter: 2013Q4

REPORT INFORMATION
  Report Type: Spontaneous
  Country: US (occurrence: US)
  Receive Date: 20131001
  Receipt Date: 20131001
  Transmission Date: 20140711
  Serious: No
  Sender: FDA-Public Use
  Company Number: US-AMGEN-USASP2013003596

PATIENT
  Age: 68 Year
  Sex: Female
  Weight: 58.96 kg

DRUGS (8)
  1. ENBREL [Suspect]
     Indication: PRODUCT USED FOR UNKNOWN INDICATION
     Dosage: 50 MG, QWK
     Route: 058
  2. METHOTREXATE [Concomitant]
     Dosage: 2.5 MG, UNK
  3. LISINOPRIL [Concomitant]
     Dosage: 5 MG, UNK
  4. TEMAZEPAM [Concomitant]
     Dosage: 22.5 MG, UNK
  5. FOLIC ACID [Concomitant]
     Dosage: UNK
  6. COQ-10 [Concomitant]
     Dosage: 100 MG, UNK
  7. OMEGA 3                            /01334101/ [Concomitant]
     Dosage: 1000 MG, UNK
  8. VITAMIN D                          /00107901/ [Concomitant]
     Dosage: 2000 UNIT, UNK

REACTIONS (1)
  - Sinusitis [Unknown]
